FAERS Safety Report 7984520-9 (Version None)
Quarter: 2011Q4

REPORT INFORMATION
  Report Type: 
  Country: None (occurrence: None)
  Receive Date: 20111216
  Receipt Date: 20111206
  Transmission Date: 20120403
  Serious: Yes (Other)
  Sender: FDA-Public Use
  Company Number: US-JNJFOC-20111202973

PATIENT
  Age: 45 Year
  Sex: Female
  Weight: 32.21 kg

DRUGS (4)
  1. REMICADE [Suspect]
     Indication: RHEUMATOID ARTHRITIS
     Route: 042
     Dates: start: 20111024, end: 20111024
  2. PLAQUENIL [Concomitant]
     Indication: PAIN
     Route: 048
     Dates: start: 20110101
  3. PREDNISONE [Concomitant]
     Route: 048
     Dates: start: 20110101
  4. NAPROXEN [Concomitant]
     Indication: PAIN
     Route: 048
     Dates: start: 20111001

REACTIONS (14)
  - LYMPHADENOPATHY [None]
  - HEART RATE INCREASED [None]
  - ARTHRALGIA [None]
  - PAIN IN EXTREMITY [None]
  - FUNGAL INFECTION [None]
  - CHEST DISCOMFORT [None]
  - INCREASED UPPER AIRWAY SECRETION [None]
  - SWELLING [None]
  - DYSPNOEA [None]
  - FATIGUE [None]
  - CHILLS [None]
  - PAIN [None]
  - BODY TEMPERATURE INCREASED [None]
  - FEELING ABNORMAL [None]
